FAERS Safety Report 13030911 (Version 1)
Quarter: 2016Q4

REPORT INFORMATION
  Report Type: Spontaneous
  Country: CA (occurrence: CA)
  Receive Date: 20161215
  Receipt Date: 20161215
  Transmission Date: 20170207
  Serious: Yes (Hospitalization)
  Sender: FDA-Public Use
  Company Number: CA-LPDUSPRD-20160734

PATIENT
  Age: 58 Year
  Sex: Female

DRUGS (1)
  1. VENOFER [Suspect]
     Active Substance: IRON SUCROSE
     Dosage: 300MG/500 ML NS X 4 Q 4 DAYS
     Route: 042
     Dates: start: 20160208, end: 20160208

REACTIONS (3)
  - Musculoskeletal chest pain [Unknown]
  - Dyspnoea [Unknown]
  - Off label use [Unknown]

NARRATIVE: CASE EVENT DATE: 20160208
